FAERS Safety Report 7974704-8 (Version None)
Quarter: 2011Q4

REPORT INFORMATION
  Report Type: 
  Country: None (occurrence: None)
  Receive Date: 20111213
  Receipt Date: 20111205
  Transmission Date: 20120403
  Serious: Yes (Life-Threatening, Hospitalization, Other)
  Sender: FDA-Public Use
  Company Number: US-ELI_LILLY_AND_COMPANY-US201111001836

PATIENT
  Sex: Female
  Weight: 46.259 kg

DRUGS (11)
  1. VERAPAMIL [Concomitant]
  2. CRESTOR [Concomitant]
  3. NEXIUM [Concomitant]
  4. ALBUTEROL [Concomitant]
  5. WARFARIN SODIUM [Concomitant]
  6. FORTEO [Suspect]
     Indication: OSTEOPOROSIS
     Dosage: 20 UG, UNK
     Dates: end: 20110919
  7. FORTEO [Suspect]
     Dosage: 20 UG, UNK
     Dates: start: 20110928
  8. FUROSEMIDE [Concomitant]
  9. ZOLOFT [Concomitant]
  10. ADVAIR DISKUS 100/50 [Concomitant]
  11. LISINOPRIL [Concomitant]

REACTIONS (7)
  - CLOSTRIDIUM DIFFICILE COLITIS [None]
  - ATRIAL FIBRILLATION [None]
  - RESPIRATORY FAILURE [None]
  - URINARY RETENTION [None]
  - ASTHMA [None]
  - DIARRHOEA [None]
  - DEHYDRATION [None]
